FAERS Safety Report 9190733 (Version 3)
Quarter: 2015Q1

REPORT INFORMATION
  Report Type: Report from Study
  Country: US (occurrence: US)
  Receive Date: 20130326
  Receipt Date: 20150327
  Transmission Date: 20150721
  Serious: Yes (Death, Hospitalization)
  Sender: FDA-Public Use
  Company Number: US-ROCHE-1206622

PATIENT
  Sex: Female
  Weight: 75.36 kg

DRUGS (1)
  1. XOLAIR [Suspect]
     Active Substance: OMALIZUMAB
     Indication: ASTHMA
     Route: 058
     Dates: start: 20090810, end: 20130304

REACTIONS (7)
  - Sleep apnoea syndrome [Unknown]
  - Acute respiratory failure [Fatal]
  - Hypertension [Unknown]
  - Lobar pneumonia [Fatal]
  - Asthma [Fatal]
  - Chronic obstructive pulmonary disease [Fatal]
  - Pulmonary arterial hypertension [Unknown]
